FAERS Safety Report 19705398 (Version 5)
Quarter: 2022Q4

REPORT INFORMATION
  Report Type: Spontaneous
  Country: US (occurrence: US)
  Receive Date: 20210816
  Receipt Date: 20221128
  Transmission Date: 20230113
  Serious: Yes (Hospitalization)
  Sender: FDA-Public Use
  Company Number: US-PFIZER INC-2021545952

PATIENT
  Age: 72 Year
  Sex: Female
  Weight: 60.317 kg

DRUGS (7)
  1. IBRANCE [Suspect]
     Active Substance: PALBOCICLIB
     Indication: Breast cancer metastatic
     Dosage: 125 MG, FOR 3 WEEKS
  2. IBRANCE [Suspect]
     Active Substance: PALBOCICLIB
     Dosage: 100 MG
     Dates: start: 20210615
  3. IBRANCE [Suspect]
     Active Substance: PALBOCICLIB
     Dosage: 75 MG
  4. CALCIUM WITH D3 [Concomitant]
     Dosage: UNK
     Dates: start: 20210713
  5. VITAMIN B12 [Concomitant]
     Active Substance: CYANOCOBALAMIN
     Dosage: UNK
  6. ZOMETA [Concomitant]
     Active Substance: ZOLEDRONIC ACID
     Dosage: UNK, CYCLIC (INFUSION) (1ST, ONE, EVERY 6 MONTH)
     Dates: start: 20210708
  7. FASLODEX [Concomitant]
     Active Substance: FULVESTRANT
     Dosage: 2 DF, MONTHLY
     Dates: start: 20210527

REACTIONS (8)
  - Chills [Unknown]
  - Blood potassium decreased [Unknown]
  - White blood cell count decreased [Unknown]
  - Platelet count decreased [Unknown]
  - Pyrexia [Unknown]
  - Fatigue [Unknown]
  - Hypoacusis [Unknown]
  - Alopecia [Unknown]

NARRATIVE: CASE EVENT DATE: 20210529
